FAERS Safety Report 10539289 (Version 1)
Quarter: 2014Q4

REPORT INFORMATION
  Report Type: Spontaneous
  Country: US (occurrence: US)
  Receive Date: 20141023
  Receipt Date: 20141023
  Transmission Date: 20150529
  Serious: Yes (Hospitalization, Other)
  Sender: FDA-Public Use
  Company Number: PHHY2014US135935

PATIENT
  Age: 41 Year
  Sex: Male

DRUGS (4)
  1. IBUPROFEN. [Concomitant]
     Active Substance: IBUPROFEN
     Indication: MUSCLE BUILDING THERAPY
     Dosage: 2 DF, QMO (APPROXIMATELY 1-2 TIMES)
     Route: 065
  2. NANDROLONE [Suspect]
     Active Substance: NANDROLONE
     Indication: MUSCLE BUILDING THERAPY
     Dosage: 400 MG, QW2
     Route: 065
  3. METHANDROSTENOLONE [Suspect]
     Active Substance: METHANDROSTENOLONE
     Indication: MUSCLE BUILDING THERAPY
     Dosage: 60 MG, QD
     Route: 048
  4. TESTOSTERONE. [Suspect]
     Active Substance: TESTOSTERONE
     Indication: MUSCLE BUILDING THERAPY
     Dosage: 400 MG, QW
     Route: 065

REACTIONS (13)
  - Fatigue [Unknown]
  - Jaundice [Unknown]
  - Urinary casts [Unknown]
  - Cholestasis [Unknown]
  - Ocular icterus [Unknown]
  - Decreased appetite [Unknown]
  - Pruritus [Unknown]
  - Crystal nephropathy [Unknown]
  - Acute kidney injury [Unknown]
  - Faeces pale [Unknown]
  - Chromaturia [Unknown]
  - Drug abuse [Unknown]
  - Weight decreased [Unknown]
